FAERS Safety Report 18069361 (Version 1)
Quarter: 2020Q3

REPORT INFORMATION
  Report Type: Spontaneous
  Country: GB (occurrence: GB)
  Receive Date: 20200725
  Receipt Date: 20200725
  Transmission Date: 20201103
  Serious: Yes (Other)
  Sender: FDA-Public Use
  Company Number: GB-ASCEND THERAPEUTICS US, LLC-2087745

PATIENT
  Age: 50 Year
  Sex: Female
  Weight: 72 kg

DRUGS (4)
  1. OESTRODOSE (ESTRADIOL) [Suspect]
     Active Substance: ESTRADIOL
     Route: 061
     Dates: start: 20200615
  2. OESTROGEL (ESTRADIOL) UNKNOWN [Suspect]
     Active Substance: ESTRADIOL
     Route: 065
     Dates: start: 20200615
  3. ESTROGEL [Suspect]
     Active Substance: ESTRADIOL
     Indication: MENOPAUSE
     Route: 061
     Dates: start: 20200615
  4. ESTROGEL [Suspect]
     Active Substance: ESTRADIOL

REACTIONS (6)
  - Menopausal symptoms [Unknown]
  - Arthralgia [Unknown]
  - Product substitution issue [Not Recovered/Not Resolved]
  - Anxiety [Unknown]
  - Drug ineffective [Not Recovered/Not Resolved]
  - Insomnia [Unknown]

NARRATIVE: CASE EVENT DATE: 20200620
